FAERS Safety Report 6165120-2 (Version None)
Quarter: 2009Q2

REPORT INFORMATION
  Report Type: 
  Country: None (occurrence: None)
  Receive Date: 20090423
  Receipt Date: 20090416
  Transmission Date: 20091009
  Serious: No
  Sender: FDA-Public Use
  Company Number: US-B.I. PHARMACEUTICALS,INC./RIDGEFIELD-2009-BP-04882BP

PATIENT
  Sex: Female

DRUGS (14)
  1. SPIRIVA [Suspect]
     Indication: CHRONIC OBSTRUCTIVE PULMONARY DISEASE
     Dosage: 18MCG
     Route: 055
     Dates: start: 20070101
  2. SPIRIVA [Suspect]
     Indication: ASTHMA
  3. PREMARIN [Concomitant]
     Dosage: 1.25MG
     Route: 048
  4. XANAX [Concomitant]
     Indication: ANXIETY
     Dosage: 1MG
     Route: 048
  5. FENTANYL TRANSDERMAL SYSTEM [Concomitant]
     Indication: BACK PAIN
     Dosage: 5MG
     Route: 062
  6. LITHIUM CARBONATE [Concomitant]
     Indication: BIPOLAR DISORDER
     Dosage: 450MG
     Route: 048
  7. PREDNISONE [Concomitant]
     Indication: CHRONIC OBSTRUCTIVE PULMONARY DISEASE
     Dosage: 5MG
     Route: 048
  8. VESICARE [Concomitant]
     Indication: HYPERTONIC BLADDER
     Dosage: 5MG
     Route: 048
  9. BENZONATHE [Concomitant]
     Indication: CHRONIC OBSTRUCTIVE PULMONARY DISEASE
     Dosage: 100MG
     Route: 048
  10. OXYCODONE HCL [Concomitant]
     Indication: BACK PAIN
     Route: 048
  11. DOXEPIN HCL [Concomitant]
     Indication: ANXIETY
     Dosage: 25MG
     Route: 048
  12. TRIAZEPAM [Concomitant]
     Indication: INSOMNIA
     Dosage: .25MG
     Route: 048
  13. ATROVENT [Concomitant]
     Indication: CHRONIC OBSTRUCTIVE PULMONARY DISEASE
     Route: 055
  14. ALBUTEROL [Concomitant]
     Indication: CHRONIC OBSTRUCTIVE PULMONARY DISEASE
     Route: 055

REACTIONS (1)
  - DYSPNOEA [None]
